FAERS Safety Report 7309516-1 (Version None)
Quarter: 2011Q1

REPORT INFORMATION
  Report Type: 
  Country: None (occurrence: None)
  Receive Date: 20110223
  Receipt Date: 20110217
  Transmission Date: 20110831
  Serious: Yes (Hospitalization)
  Sender: FDA-Public Use
  Company Number: US-RB-016092-10

PATIENT
  Age: 51 Year
  Sex: Male

DRUGS (5)
  1. CELEXA [Concomitant]
     Indication: DEPRESSION
     Dosage: OTHER DOSING DETAILS UNKNOWN
     Route: 065
  2. LEVOTHYROXINE SODIUM [Concomitant]
     Dosage: DOING DETAILS UNKNOWN
     Route: 065
  3. SUBOXONE [Suspect]
     Indication: DRUG DEPENDENCE
     Route: 060
     Dates: start: 20100501, end: 20100101
  4. SUBOXONE [Suspect]
     Dosage: DOSE TAPERED; DETAILS UNKNOWN
     Route: 060
     Dates: start: 20100101, end: 20110101
  5. FLUDROCORTISON [Concomitant]
     Indication: HYPOTENSION
     Dosage: DOSING DETAILS UNKNOWN
     Route: 065

REACTIONS (5)
  - APATHY [None]
  - DEPRESSION [None]
  - NEPHROLITHIASIS [None]
  - CONSTIPATION [None]
  - DRUG WITHDRAWAL SYNDROME [None]
